FAERS Safety Report 8333649-4 (Version None)
Quarter: 2012Q2

REPORT INFORMATION
  Report Type: 
  Country: None (occurrence: None)
  Receive Date: 20120503
  Receipt Date: 20120430
  Transmission Date: 20120825
  Serious: Yes (Other)
  Sender: FDA-Public Use
  Company Number: US-BAYER-200825368NA

PATIENT
  Age: 57 Year
  Sex: Male
  Weight: 77.098 kg

DRUGS (58)
  1. OMNISCAN [Suspect]
     Indication: VENOGRAM RENAL
     Dosage: UNK, ONCE
     Dates: start: 20050901, end: 20050901
  2. OMNISCAN [Suspect]
     Dosage: UNK, ONCE
     Dates: start: 20050928, end: 20050929
  3. OMNISCAN [Suspect]
     Dosage: UNK, ONCE
     Dates: start: 20051103, end: 20051103
  4. MULTIHANCE [Suspect]
     Indication: NUCLEAR MAGNETIC RESONANCE IMAGING
  5. PRAVACHOL [Concomitant]
  6. SODIUM CITRATE [Concomitant]
  7. KAYEXALATE [Concomitant]
  8. OXYCODONE HCL [Concomitant]
  9. OMNISCAN [Suspect]
     Indication: RENAL SCAN
     Dosage: UNK UNK, ONCE
     Dates: start: 20050825, end: 20050825
  10. OPTIMARK [Suspect]
     Dosage: 19 ML, ONCE
     Dates: start: 20050705, end: 20050705
  11. ASPIRIN [Concomitant]
  12. PREDNISONE [Concomitant]
  13. CALCITONIN SALMON [Concomitant]
  14. ZAROXOLYN [Concomitant]
  15. MS CONTIN [Concomitant]
  16. LEXAPRO [Concomitant]
  17. LISINOPRIL [Concomitant]
  18. MAGNEVIST [Suspect]
     Indication: NUCLEAR MAGNETIC RESONANCE IMAGING
  19. OMNISCAN [Suspect]
     Indication: NUCLEAR MAGNETIC RESONANCE IMAGING
     Dosage: UNK, ONCE
     Dates: start: 20050908, end: 20050908
  20. OMNISCAN [Suspect]
     Dosage: UNK, ONCE
     Dates: start: 20051001, end: 20051001
  21. COUMADIN [Concomitant]
  22. PENTAMIDINE [Concomitant]
  23. COMPAZINE [Concomitant]
  24. OMNISCAN [Suspect]
     Dosage: UNK, ONCE
     Dates: start: 20051018, end: 20051018
  25. OPTIMARK [Suspect]
     Indication: NUCLEAR MAGNETIC RESONANCE IMAGING BRAIN
     Dosage: 19 ML, UNK
     Dates: start: 20050420, end: 20050420
  26. SPIRIVA [Concomitant]
  27. ATIVAN [Concomitant]
  28. NORVASC [Concomitant]
  29. LASIX [Concomitant]
  30. NEPHROVITE [VIT C,VIT H,B5,B12,B9,B3,B6,B2,B1 HCL] [Concomitant]
  31. RENAGEL [Concomitant]
  32. OMNISCAN [Suspect]
     Indication: ANGIOGRAM PERIPHERAL
     Dosage: UNK, ONCE
     Dates: start: 20050830, end: 20050830
  33. FLAGYL [Concomitant]
  34. CALCITRIOL [Concomitant]
  35. LABETALOL HCL [Concomitant]
  36. PHOSLO [Concomitant]
  37. NORMODYNE [Concomitant]
  38. OMNISCAN [Suspect]
     Dosage: UNK
  39. LOPRESSOR [Concomitant]
  40. THIAMINE [Concomitant]
  41. CYTOXAN [Concomitant]
  42. WELLBUTRIN [Concomitant]
  43. OMNISCAN [Suspect]
     Dosage: UNK, ONCE
     Dates: start: 20051003, end: 20051003
  44. OMNISCAN [Suspect]
     Dosage: UNK, ONCE
     Dates: start: 20051021, end: 20051021
  45. PROHANCE [Suspect]
     Indication: NUCLEAR MAGNETIC RESONANCE IMAGING
  46. GADOLINIUM IN UNSPECIFIED DRUG [Suspect]
     Indication: NUCLEAR MAGNETIC RESONANCE IMAGING
     Dosage: UNK UNK, ONCE
     Dates: start: 20060317, end: 20060317
  47. VIAGRA [Concomitant]
  48. HEPARIN [Concomitant]
  49. TRAZODONE HCL [Concomitant]
  50. PROTONIX [Concomitant]
  51. DARBEPOETIN ALFA [Concomitant]
  52. FOSAMAX [Concomitant]
  53. OMNISCAN [Suspect]
     Dosage: UNK, ONCE
     Dates: start: 20050906, end: 20050906
  54. FOLIC ACID [Concomitant]
  55. ALBUTEROL [Concomitant]
  56. ACETAMINOPHEN [Concomitant]
  57. MAGNESIUM OXIDE [Concomitant]
  58. MIRAPEX [Concomitant]

REACTIONS (27)
  - MUSCULAR WEAKNESS [None]
  - SKIN PLAQUE [None]
  - SKIN HYPERTROPHY [None]
  - MUSCULOSKELETAL STIFFNESS [None]
  - PAIN [None]
  - NEPHROGENIC SYSTEMIC FIBROSIS [None]
  - PRURITUS [None]
  - FATIGUE [None]
  - OEDEMA PERIPHERAL [None]
  - JOINT STIFFNESS [None]
  - MOBILITY DECREASED [None]
  - SKIN WRINKLING [None]
  - ERYTHEMA [None]
  - EMOTIONAL DISTRESS [None]
  - HYPOAESTHESIA [None]
  - PEAU D'ORANGE [None]
  - ANXIETY [None]
  - DRY SKIN [None]
  - SCAR [None]
  - ARTHRALGIA [None]
  - SKIN TIGHTNESS [None]
  - PAIN IN EXTREMITY [None]
  - SKIN LESION [None]
  - INJURY [None]
  - ANHEDONIA [None]
  - JOINT RANGE OF MOTION DECREASED [None]
  - SKIN HYPOPIGMENTATION [None]
